FAERS Safety Report 15358216 (Version 1)
Quarter: 2018Q3

REPORT INFORMATION
  Report Type: Spontaneous
  Country: US (occurrence: US)
  Receive Date: 20180906
  Receipt Date: 20180906
  Transmission Date: 20181010
  Serious: No
  Sender: FDA-Public Use
  Company Number: US-PERRIGO-18US006130

PATIENT
  Age: 69 Year
  Sex: Female
  Weight: 63.49 kg

DRUGS (3)
  1. VITAMINS                           /90003601/ [Concomitant]
     Active Substance: VITAMINS
     Indication: SUPPLEMENTATION THERAPY
     Dosage: UNK
     Route: 048
  2. BONIVA [Concomitant]
     Active Substance: IBANDRONATE SODIUM
     Indication: OSTEOPOROSIS
     Dosage: UNK
     Route: 048
  3. MINOXIDIL. [Suspect]
     Active Substance: MINOXIDIL
     Indication: ALOPECIA
     Dosage: 1 ML, BID
     Route: 061
     Dates: start: 201805, end: 201805

REACTIONS (3)
  - Application site dryness [Not Recovered/Not Resolved]
  - Application site irritation [Recovered/Resolved]
  - Application site pruritus [Recovering/Resolving]

NARRATIVE: CASE EVENT DATE: 201805
